FAERS Safety Report 10048102 (Version 2)
Quarter: 2014Q2

REPORT INFORMATION
  Report Type: Spontaneous
  Country: US (occurrence: US)
  Receive Date: 20140331
  Receipt Date: 20140428
  Transmission Date: 20141212
  Serious: Yes (Other)
  Sender: FDA-Public Use
  Company Number: US-PFIZER INC-2014087400

PATIENT
  Age: 73 Year
  Sex: Female
  Weight: 50 kg

DRUGS (3)
  1. CYTOMEL [Suspect]
     Indication: HYPOTHYROIDISM
     Dosage: 5 UG, 3X/DAY
  2. SYNTHROID [Suspect]
     Indication: HYPOTHYROIDISM
     Dosage: 100 UG, DAILY
     Dates: start: 2002
  3. SYNTHROID [Suspect]
     Dosage: 200 UG, DAILY

REACTIONS (3)
  - Autoimmune thyroiditis [Unknown]
  - Autoimmune disorder [Unknown]
  - Thyroid disorder [Unknown]
